FAERS Safety Report 12408923 (Version 2)
Quarter: 2016Q3

REPORT INFORMATION
  Report Type: Spontaneous
  Country: US (occurrence: US)
  Receive Date: 20160526
  Receipt Date: 20160816
  Transmission Date: 20161109
  Serious: Yes (Hospitalization, Other)
  Sender: FDA-Public Use
  Company Number: US-PFIZER INC-2016276173

PATIENT
  Age: 61 Year
  Sex: Male

DRUGS (2)
  1. DEPO-TESTOSTERONE [Suspect]
     Active Substance: TESTOSTERONE CYPIONATE
     Indication: HORMONE REPLACEMENT THERAPY
     Dosage: UNK, ONCE PER EVERY TWO WEEKS
     Dates: start: 200810
  2. DEPO-TESTOSTERONE [Suspect]
     Active Substance: TESTOSTERONE CYPIONATE
     Dosage: UNK, ONCE PER EVERY TWO WEEKS
     Dates: start: 20090114, end: 20140603

REACTIONS (2)
  - Myocardial infarction [Unknown]
  - Coronary bypass thrombosis [Unknown]

NARRATIVE: CASE EVENT DATE: 20090804
